FAERS Safety Report 24380258 (Version 2)
Quarter: 2024Q4

REPORT INFORMATION
  Report Type: Spontaneous
  Country: ES (occurrence: ES)
  Receive Date: 20240930
  Receipt Date: 20241007
  Transmission Date: 20250115
  Serious: Yes (Hospitalization)
  Sender: BOEHRINGER INGELHEIM
  Company Number: ES-BoehringerIngelheim-2024-BI-054117

PATIENT
  Age: 74 Year
  Sex: Male

DRUGS (4)
  1. PRADAXA [Suspect]
     Active Substance: DABIGATRAN ETEXILATE MESYLATE
     Indication: Arrhythmia
     Dosage: AT 10AM AND 10PM. DISCONTINUED IN MAY2020 DUE TO SURGERY.
     Dates: end: 202005
  2. PRADAXA [Suspect]
     Active Substance: DABIGATRAN ETEXILATE MESYLATE
     Dosage: AT 10AM AND 10PM. TEMPORARY DISCONTINUED IN SEP2024 DUE TO SURGERY FOR PROSTATE REMOVAL
     Dates: start: 202005, end: 202409
  3. PRADAXA [Suspect]
     Active Substance: DABIGATRAN ETEXILATE MESYLATE
     Dosage: AT 10AM AND 10PM
     Dates: start: 20240926
  4. HIBOR [Concomitant]
     Indication: Arrhythmia
     Dosage: PATIENT WAS WITH HIBOR 3500 AND LATER WITH HIBOR 7500.
     Dates: start: 202409, end: 202409

REACTIONS (3)
  - Urethral disorder [Recovered/Resolved with Sequelae]
  - Prostate cancer [Recovered/Resolved]
  - Blood urine present [Recovering/Resolving]

NARRATIVE: CASE EVENT DATE: 20200501
